FAERS Safety Report 19253822 (Version 1)
Quarter: 2021Q2

REPORT INFORMATION
  Report Type: Spontaneous
  Country: US (occurrence: US)
  Receive Date: 20210513
  Receipt Date: 20210513
  Transmission Date: 20210717
  Serious: Yes (Death)
  Sender: FDA-Public Use
  Company Number: US-ASTRAZENECA-2021A412458

PATIENT
  Age: 29372 Day
  Sex: Male

DRUGS (1)
  1. BRILINTA [Suspect]
     Active Substance: TICAGRELOR
     Route: 048

REACTIONS (5)
  - Hypoxia [Fatal]
  - Arteriosclerosis [Fatal]
  - Peptic ulcer [Fatal]
  - Chronic obstructive pulmonary disease [Fatal]
  - Death [Fatal]

NARRATIVE: CASE EVENT DATE: 20190603
